FAERS Safety Report 18586708 (Version 2)
Quarter: 2020Q4

REPORT INFORMATION
  Report Type: Spontaneous
  Country: US (occurrence: US)
  Receive Date: 20201207
  Receipt Date: 20201219
  Transmission Date: 20210114
  Serious: No
  Sender: FDA-Public Use
  Company Number: US-ELI_LILLY_AND_COMPANY-US202011010348

PATIENT
  Age: 11 Year
  Sex: Female

DRUGS (2)
  1. HUMATROPE [Suspect]
     Active Substance: SOMATROPIN
     Dosage: 1 MG, EACH EVENING
     Route: 058
  2. HUMATROPE [Suspect]
     Active Substance: SOMATROPIN
     Indication: PRODUCT USED FOR UNKNOWN INDICATION
     Dosage: 1 MG, EACH EVENING
     Route: 058
     Dates: start: 20201119

REACTIONS (7)
  - Wrong technique in product usage process [Unknown]
  - Product dispensing error [Unknown]
  - Injection site pain [Unknown]
  - Anxiety [Unknown]
  - Injection site pain [Unknown]
  - Injection site bruising [Unknown]
  - Tenderness [Unknown]

NARRATIVE: CASE EVENT DATE: 202011
